FAERS Safety Report 10511349 (Version 1)
Quarter: 2014Q4

REPORT INFORMATION
  Report Type: Spontaneous
  Country: CH (occurrence: None)
  Receive Date: 20141008
  Receipt Date: 20141008
  Transmission Date: 20150528
  Serious: Yes (Hospitalization)
  Sender: FDA-Public Use
  Company Number: INT_00440_2014

PATIENT
  Age: 29 Year
  Sex: Male

DRUGS (4)
  1. BLEOMYCIN [Suspect]
     Active Substance: BLEOMYCIN SULFATE
     Indication: TESTICULAR GERM CELL CANCER
     Dosage: UKNOWN, LAST DOSE OMITTED, 3 CYCLES)
  2. CISPLATIN (CISPLATIN) (HQ SPECIALTY) [Suspect]
     Active Substance: CISPLATIN
     Indication: TESTICULAR GERM CELL CANCER
     Dosage: DOSE  UKNOWN, 2 CYCLES
  3. ETOPOSIDE (ETOPOSIDE) [Suspect]
     Active Substance: ETOPOSIDE
     Indication: TESTICULAR GERM CELL CANCER
     Dosage: DOSE UKNOWN, 3 CYCLES
  4. CARBOPLATIN (CARBOPLATIN) [Suspect]
     Active Substance: CARBOPLATIN
     Indication: TESTICULAR GERM CELL CANCER
     Dosage: DF

REACTIONS (4)
  - Epilepsy [None]
  - Cerebral venous thrombosis [None]
  - Subarachnoid haemorrhage [None]
  - Headache [None]
